FAERS Safety Report 11360370 (Version 1)
Quarter: 2015Q3

REPORT INFORMATION
  Report Type: Report from Study
  Country: US (occurrence: US)
  Receive Date: 20150810
  Receipt Date: 20150810
  Transmission Date: 20151125
  Serious: Yes (Other)
  Sender: FDA-Public Use
  Company Number: PHEH2014US021167

PATIENT
  Sex: Female

DRUGS (5)
  1. EXTAVIA [Suspect]
     Active Substance: INTERFERON BETA-1B
     Dosage: 0.187 MG (0.75 ML), QOD WEEKS 05 TO 06
     Route: 058
  2. EXTAVIA [Suspect]
     Active Substance: INTERFERON BETA-1B
     Indication: MULTIPLE SCLEROSIS
     Dosage: 0.062 MG (0.25ML), QOD WEEKS 01 TO 02
     Route: 058
  3. EXTAVIA [Suspect]
     Active Substance: INTERFERON BETA-1B
     Dosage: 0.125 MG (0.5 ML), QOD WEEKS 03 TO 04
     Route: 058
  4. EXTAVIA [Suspect]
     Active Substance: INTERFERON BETA-1B
     Dosage: 0.25 MG(1 ML), QOD WEEKS 07 PLUS
     Route: 058
     Dates: start: 201201
  5. SOLU-MEDROL [Concomitant]
     Active Substance: METHYLPREDNISOLONE SODIUM SUCCINATE
     Indication: PRODUCT USED FOR UNKNOWN INDICATION
     Dosage: UNK
     Route: 042

REACTIONS (9)
  - Asthenia [Recovering/Resolving]
  - Diplopia [Recovering/Resolving]
  - Bladder dysfunction [Recovering/Resolving]
  - Micturition disorder [Recovering/Resolving]
  - Vision blurred [Recovering/Resolving]
  - Limb discomfort [Not Recovered/Not Resolved]
  - Vein disorder [Unknown]
  - Multiple sclerosis [Unknown]
  - Hypoaesthesia [Recovering/Resolving]
